FAERS Safety Report 5542905-4 (Version None)
Quarter: 2007Q4

REPORT INFORMATION
  Report Type: 
  Country: None (occurrence: None)
  Receive Date: 20071210
  Receipt Date: 20071128
  Transmission Date: 20080405
  Serious: Yes (Other)
  Sender: FDA-Public Use
  Company Number: US-PFIZER INC-2007100636

PATIENT
  Sex: Female

DRUGS (5)
  1. LYRICA [Suspect]
     Indication: PAIN IN EXTREMITY
     Route: 048
     Dates: start: 20070901, end: 20071127
  2. AVANDIA [Concomitant]
     Route: 048
  3. GLUCOPHAGE [Concomitant]
     Route: 048
  4. NOVOLOG [Concomitant]
     Dosage: TEXT:1 INJECTION THREE TIMES A DAY
  5. LANTUS [Concomitant]
     Dosage: TEXT:1 INJECTION TWICE A DAY

REACTIONS (5)
  - ABASIA [None]
  - ARTHRALGIA [None]
  - BACK PAIN [None]
  - RASH [None]
  - RASH PRURITIC [None]
